FAERS Safety Report 4666417-5 (Version None)
Quarter: 2005Q2

REPORT INFORMATION
  Report Type: 
  Country: None (occurrence: None)
  Receive Date: 20050518
  Receipt Date: 20050503
  Transmission Date: 20051028
  Serious: Yes (Other)
  Sender: FDA-Public Use
  Company Number: PHEH2004US09319

PATIENT
  Age: 80 Year
  Sex: Male

DRUGS (3)
  1. VISUDYNE [Suspect]
     Indication: MACULAR DEGENERATION
     Dosage: 2 MG/ML ONCE IV
     Route: 042
     Dates: start: 20001128, end: 20001128
  2. ASPIRIN [Concomitant]
  3. M.V.I. [Concomitant]

REACTIONS (7)
  - BLINDNESS [None]
  - CONDITION AGGRAVATED [None]
  - DISEASE PROGRESSION [None]
  - EYE HAEMORRHAGE [None]
  - FIBROSIS [None]
  - HEARING IMPAIRED [None]
  - VISUAL ACUITY REDUCED [None]
